FAERS Safety Report 12557127 (Version 1)
Quarter: 2016Q3

REPORT INFORMATION
  Report Type: Spontaneous
  Country: US (occurrence: US)
  Receive Date: 20160714
  Receipt Date: 20160714
  Transmission Date: 20161109
  Serious: Yes (Disabling, Other)
  Sender: FDA-Public Use
  Company Number: US-009507513-1607USA006070

PATIENT
  Age: 54 Year
  Sex: Female

DRUGS (1)
  1. FOSAMAX [Suspect]
     Active Substance: ALENDRONATE SODIUM
     Indication: PRODUCT USED FOR UNKNOWN INDICATION
     Dosage: UNK
     Route: 048

REACTIONS (11)
  - Large granular lymphocytosis [Unknown]
  - Suicidal ideation [Unknown]
  - Cardiac failure [Unknown]
  - Tooth loss [Unknown]
  - Intracranial aneurysm [Unknown]
  - Rheumatoid arthritis [Unknown]
  - Osteonecrosis of jaw [Not Recovered/Not Resolved]
  - Meningioma [Unknown]
  - Breast cancer [Unknown]
  - Treatment failure [Not Recovered/Not Resolved]
  - Disability [Unknown]

NARRATIVE: CASE EVENT DATE: 2008
